FAERS Safety Report 18698346 (Version 2)
Quarter: 2021Q2

REPORT INFORMATION
  Report Type: Spontaneous
  Country: US (occurrence: US)
  Receive Date: 20210104
  Receipt Date: 20210422
  Transmission Date: 20210717
  Serious: Yes (Other)
  Sender: FDA-Public Use
  Company Number: US-PFIZER INC-2020521290

PATIENT
  Age: 62 Year
  Sex: Female

DRUGS (1)
  1. XELJANZ XR [Suspect]
     Active Substance: TOFACITINIB CITRATE
     Indication: RHEUMATOID ARTHRITIS
     Dosage: 11 MG, DAILY
     Route: 048
     Dates: start: 202006

REACTIONS (11)
  - Paraesthesia [Recovered/Resolved]
  - Sensory disturbance [Unknown]
  - Oropharyngeal pain [Unknown]
  - Rash [Unknown]
  - Oral mucosal blistering [Unknown]
  - Neuropathy peripheral [Recovered/Resolved]
  - Flushing [Unknown]
  - Blood pressure increased [Unknown]
  - Condition aggravated [Unknown]
  - Hypertonic bladder [Unknown]
  - Blister [Unknown]

NARRATIVE: CASE EVENT DATE: 2020
